FAERS Safety Report 9589975 (Version 1)
Quarter: 2013Q4

REPORT INFORMATION
  Report Type: Spontaneous
  Country: US (occurrence: US)
  Receive Date: 20131003
  Receipt Date: 20131003
  Transmission Date: 20140711
  Serious: No
  Sender: FDA-Public Use
  Company Number: US-AMGEN-USASP2012073771

PATIENT
  Age: 55 Year
  Sex: Male
  Weight: 41.72 kg

DRUGS (5)
  1. ENBREL [Suspect]
     Indication: RHEUMATOID ARTHRITIS
     Dosage: 50 MG, WEEKLY
     Route: 058
  2. COREG [Concomitant]
     Dosage: 10 MG, UNK
  3. AMLODIPINE [Concomitant]
     Dosage: 10 MG, UNK
  4. MULTIVITAMIN                       /00097801/ [Concomitant]
  5. PLAVIX [Concomitant]
     Dosage: 75 MG, UNK

REACTIONS (2)
  - Hypertension [Unknown]
  - Local swelling [Unknown]
